FAERS Safety Report 10006834 (Version 1)
Quarter: 2014Q1

REPORT INFORMATION
  Report Type: Spontaneous
  Country: US (occurrence: None)
  Receive Date: 20140311
  Receipt Date: 20140311
  Transmission Date: 20141002
  Serious: Yes (Life-Threatening, Hospitalization)
  Sender: FDA-Public Use
  Company Number: 20140116

PATIENT
  Age: 69 Year
  Sex: Male

DRUGS (6)
  1. EPINEPHRINE INJECTION, USP (1071-25) 1 MG/ML [Suspect]
     Indication: ANAPHYLACTIC REACTION
     Route: 030
  2. ASPIRIN [Suspect]
     Dosage: VARIABLE DOSING
  3. DIPHENHYDRAMINE,50 MG [Concomitant]
  4. FAMOTIDINE [Concomitant]
  5. ALBUTEROL NEBULIZER [Concomitant]
  6. METHYLPREDNISOLONE,125 MG [Concomitant]

REACTIONS (2)
  - Kounis syndrome [None]
  - Acute myocardial infarction [None]
